FAERS Safety Report 15058281 (Version 1)
Quarter: 2018Q2

REPORT INFORMATION
  Report Type: Report from Study
  Country: US (occurrence: US)
  Receive Date: 20180625
  Receipt Date: 20180625
  Transmission Date: 20180711
  Serious: Yes (Other)
  Sender: FDA-Public Use
  Company Number: US-BEH-2018091967

PATIENT
  Age: 61 Year
  Sex: Male
  Weight: 70.75 kg

DRUGS (1)
  1. ZEMAIRA [Suspect]
     Active Substance: .ALPHA.1-PROTEINASE INHIBITOR HUMAN
     Indication: ALPHA-1 ANTI-TRYPSIN DEFICIENCY
     Dosage: UNK UNK, QW
     Route: 042
     Dates: start: 20170712

REACTIONS (2)
  - Pulmonary mass [Unknown]
  - Pericardial mass [Unknown]

NARRATIVE: CASE EVENT DATE: 20180511
